FAERS Safety Report 21169703 (Version 2)
Quarter: 2022Q3

REPORT INFORMATION
  Report Type: Spontaneous
  Country: MX (occurrence: MX)
  Receive Date: 20220804
  Receipt Date: 20220919
  Transmission Date: 20221027
  Serious: Yes (Hospitalization)
  Sender: FDA-Public Use
  Company Number: MX-NOVOPROD-944126

PATIENT
  Age: 41 Year
  Sex: Female
  Weight: 72 kg

DRUGS (17)
  1. VICTOZA [Suspect]
     Active Substance: LIRAGLUTIDE
     Dosage: 1.2 MG
     Route: 058
     Dates: start: 202208
  2. VICTOZA [Suspect]
     Active Substance: LIRAGLUTIDE
     Indication: Weight control
     Dosage: UNK
     Route: 058
     Dates: start: 20220625
  3. VICTOZA [Suspect]
     Active Substance: LIRAGLUTIDE
     Dosage: 0.6 MG
     Route: 058
     Dates: start: 20220812
  4. VICTOZA [Suspect]
     Active Substance: LIRAGLUTIDE
     Indication: Glycosylated haemoglobin increased
     Dosage: 1.8 MG, QD
     Route: 058
     Dates: end: 20220805
  5. VICTOZA [Suspect]
     Active Substance: LIRAGLUTIDE
     Indication: Insulin resistance
     Dosage: 1.2 MG
     Route: 058
  6. DEFLAZACORT [Concomitant]
     Active Substance: DEFLAZACORT
     Indication: Systemic lupus erythematosus
     Dosage: 6 MG, QD
     Route: 048
     Dates: start: 2009
  7. MYCOPHENOLATE MOFETIL [Concomitant]
     Active Substance: MYCOPHENOLATE MOFETIL
     Indication: Systemic lupus erythematosus
     Dosage: 1 G, QD
     Route: 048
     Dates: start: 2009
  8. LEVOTHYROXINE [Concomitant]
     Active Substance: LEVOTHYROXINE
     Indication: Hypothyroidism
     Dosage: 50 MICROGRAMS DOSE FROM MONDAY TO FRIDAY AND 100MICROGRAMS FROM SATURDAY TO SUNDAY
     Route: 048
     Dates: start: 2014
  9. OMEPRAZOLE [Concomitant]
     Active Substance: OMEPRAZOLE
     Indication: Hiatus hernia
     Dosage: UNK
     Route: 048
     Dates: start: 2017
  10. ACENOCOUMAROL [Concomitant]
     Active Substance: ACENOCOUMAROL
     Indication: Antiphospholipid syndrome
     Dosage: 20 MG, QD
     Route: 048
     Dates: start: 2014
  11. SPIRONOLACTONE [Concomitant]
     Active Substance: SPIRONOLACTONE
     Indication: Nephropathy
     Dosage: UNK QD
     Route: 048
     Dates: start: 202208
  12. FUROSEMIDE\SPIRONOLACTONE [Concomitant]
     Active Substance: FUROSEMIDE\SPIRONOLACTONE
     Indication: Nephropathy
     Dosage: 20 MG, QD
     Route: 048
     Dates: start: 2019, end: 202208
  13. CHLORTHALIDONE [Concomitant]
     Active Substance: CHLORTHALIDONE
     Indication: Nephropathy
     Dosage: UNK QD
     Route: 048
     Dates: start: 202208
  14. BUPRENORFINE GLENMARK [Concomitant]
     Indication: Osteonecrosis
     Dosage: TRANSDERMIC PATCHES EVERY 14 DAYS
     Route: 062
     Dates: start: 2020, end: 202208
  15. ATORVASTATIN [Concomitant]
     Active Substance: ATORVASTATIN
     Indication: Dyslipidaemia
     Dosage: 20 MG, QD
     Route: 048
     Dates: start: 202206
  16. CALTRATE [Concomitant]
     Active Substance: CALCIUM CARBONATE
     Indication: Osteoporosis
     Dosage: 20 MG, QD
     Route: 048
     Dates: start: 202206
  17. CALCITRIOL [Concomitant]
     Active Substance: CALCITRIOL
     Indication: Osteoporosis
     Dosage: 1 TAB QD (DOSAGE AND UNITS NOT REPORTED)
     Route: 048
     Dates: start: 2018

REACTIONS (7)
  - Hypokalaemia [Recovered/Resolved]
  - Hip arthroplasty [Recovered/Resolved]
  - International normalised ratio increased [Recovered/Resolved]
  - Drug interaction [Unknown]
  - Blood pressure decreased [Not Recovered/Not Resolved]
  - Weight decreased [Not Recovered/Not Resolved]
  - Decreased appetite [Recovering/Resolving]

NARRATIVE: CASE EVENT DATE: 20220601
